FAERS Safety Report 7640885-9 (Version None)
Quarter: 2011Q3

REPORT INFORMATION
  Report Type: 
  Country: None (occurrence: None)
  Receive Date: 20110728
  Receipt Date: 20110728
  Transmission Date: 20111222
  Serious: Yes (Hospitalization, Disabling)
  Sender: FDA-Public Use
  Company Number: None

PATIENT
  Sex: Male
  Weight: 112.49 kg

DRUGS (3)
  1. ACTOS [Suspect]
     Indication: PROPHYLAXIS
     Dosage: 15MG
     Route: 048
  2. ACTOS [Suspect]
     Indication: DIABETES MELLITUS INADEQUATE CONTROL
     Dosage: 15MG
     Route: 048
  3. ACTOS [Suspect]
     Indication: DIABETES MELLITUS
     Dosage: 15MG
     Route: 048

REACTIONS (6)
  - WITHDRAWAL SYNDROME [None]
  - DIZZINESS [None]
  - MOOD SWINGS [None]
  - TINNITUS [None]
  - FATIGUE [None]
  - MALAISE [None]
